FAERS Safety Report 5530074-6 (Version None)
Quarter: 2007Q4

REPORT INFORMATION
  Report Type: 
  Country: None (occurrence: None)
  Receive Date: 20071119
  Receipt Date: 20070814
  Transmission Date: 20080405
  Serious: No
  Sender: FDA-Public Use
  Company Number: TPA2007A01386

PATIENT
  Sex: Male
  Weight: 105.2345 kg

DRUGS (5)
  1. ROZEREM [Suspect]
     Indication: INSOMNIA
     Dosage: 8 MG, HS, PER ORAL
     Route: 048
  2. BENICAR [Concomitant]
  3. CRESTOR [Concomitant]
  4. SULAR [Concomitant]
  5. LISINOPRIL [Concomitant]

REACTIONS (1)
  - ABNORMAL DREAMS [None]
